FAERS Safety Report 7743882-8 (Version None)
Quarter: 2011Q3

REPORT INFORMATION
  Report Type: 
  Country: None (occurrence: None)
  Receive Date: 20110912
  Receipt Date: 20110901
  Transmission Date: 20111222
  Serious: Yes (Other)
  Sender: FDA-Public Use
  Company Number: US-GLAXOSMITHKLINE-A0943198A

PATIENT
  Age: 33 Year
  Sex: Female

DRUGS (3)
  1. ESKALITH [Concomitant]
  2. LAMICTAL [Suspect]
     Indication: BIPOLAR DISORDER
     Dosage: 100MG PER DAY
     Route: 048
     Dates: start: 20110617, end: 20110825
  3. PRENATAL VITAMINS [Concomitant]

REACTIONS (10)
  - PYREXIA [None]
  - FEELING ABNORMAL [None]
  - HEPATIC ENZYME INCREASED [None]
  - INFLUENZA LIKE ILLNESS [None]
  - NEUTROPHIL COUNT INCREASED [None]
  - HEADACHE [None]
  - RASH ERYTHEMATOUS [None]
  - NAUSEA [None]
  - DECREASED APPETITE [None]
  - ABDOMINAL PAIN UPPER [None]
